FAERS Safety Report 4961171-1 (Version None)
Quarter: 2006Q1

REPORT INFORMATION
  Report Type: 
  Country: None (occurrence: None)
  Receive Date: 20060201
  Receipt Date: 20051026
  Transmission Date: 20060701
  Serious: No
  Sender: FDA-Public Use
  Company Number: 2005PV003788

PATIENT
  Age: 74 Year
  Sex: Male
  Weight: 106.5953 kg

DRUGS (9)
  1. BYETTA [Suspect]
     Indication: DIABETES MELLITUS NON-INSULIN-DEPENDENT
     Dosage: 5 MCG;BID;SC
     Route: 058
     Dates: start: 20051012
  2. AVANDIA [Concomitant]
  3. ZOLOFT [Concomitant]
  4. METANX PAM [Concomitant]
  5. DIOVAN [Concomitant]
  6. GLIPIZIDE [Concomitant]
  7. VYTORIN [Concomitant]
  8. AGGRENOX [Concomitant]
  9. LANTUS [Concomitant]

REACTIONS (8)
  - ANOREXIA [None]
  - BLOOD GLUCOSE INCREASED [None]
  - DIARRHOEA [None]
  - DYSPEPSIA [None]
  - ERUCTATION [None]
  - FLATULENCE [None]
  - NAUSEA [None]
  - WEIGHT DECREASED [None]
